FAERS Safety Report 7633504-9 (Version None)
Quarter: 2011Q3

REPORT INFORMATION
  Report Type: 
  Country: None (occurrence: None)
  Receive Date: 20110725
  Receipt Date: 20110531
  Transmission Date: 20111222
  Serious: No
  Sender: FDA-Public Use
  Company Number: US-BRISTOL-MYERS SQUIBB COMPANY-15792229

PATIENT
  Age: 74 Year
  Sex: Female
  Weight: 77 kg

DRUGS (2)
  1. SPRYCEL [Suspect]
     Indication: CHRONIC LEUKAEMIA
     Route: 048
  2. HYZAAR [Concomitant]

REACTIONS (1)
  - MYALGIA [None]
